FAERS Safety Report 8117045-0 (Version None)
Quarter: 2012Q1

REPORT INFORMATION
  Report Type: 
  Country: None (occurrence: None)
  Receive Date: 20120206
  Receipt Date: 20120203
  Transmission Date: 20120608
  Serious: Yes (Other)
  Sender: FDA-Public Use
  Company Number: US-PFIZER INC-2012030885

PATIENT
  Sex: Female
  Weight: 90.7 kg

DRUGS (14)
  1. KETOROLAC TROMETHAMINE [Suspect]
     Indication: EYE OEDEMA
     Dosage: UNK
     Route: 047
  2. LIPITOR [Suspect]
     Indication: BLOOD CHOLESTEROL INCREASED
     Dosage: 20 MG, DAILY
     Route: 048
  3. CELEBREX [Suspect]
     Dosage: 200 MG, 1X/DAY
     Dates: start: 20111201
  4. LIPITOR [Suspect]
     Dosage: 20 MG, 1X/DAY
     Dates: start: 20111001
  5. CELEBREX [Suspect]
     Indication: POLYARTHRITIS
     Dosage: 200 MG, DAILY
  6. SIMVASTATIN [Suspect]
     Indication: BLOOD CHOLESTEROL INCREASED
     Dosage: UNK
     Dates: end: 20111001
  7. CORTISONE ACETATE [Suspect]
     Indication: EYE OEDEMA
     Dosage: UNK, 4X/DAY
     Dates: start: 20110501
  8. PROPYLENE GLYCOL [Suspect]
     Indication: EYE OEDEMA
     Dosage: UNK
     Route: 047
  9. ACETAZOLAMIDE [Suspect]
     Indication: EYE OEDEMA
     Dosage: 125 MG, DAILY
  10. NAPROXEN SODIUM [Suspect]
     Indication: POLYARTHRITIS
     Dosage: UNK
     Dates: end: 20111201
  11. TOBRAMYCIN SULFATE [Suspect]
     Indication: EYE OEDEMA
     Dosage: UNK
     Route: 047
  12. PREDNISOLONE ACETATE [Suspect]
     Indication: EYE OEDEMA
     Dosage: UNK
     Route: 047
  13. PRED FORTE [Suspect]
     Indication: EYE OEDEMA
     Dosage: UNK
     Route: 047
  14. LEVOXYL [Concomitant]
     Indication: THYROIDECTOMY
     Dosage: 175 UG, DAILY

REACTIONS (4)
  - CATARACT [None]
  - EYE OEDEMA [None]
  - INTRAOCULAR PRESSURE INCREASED [None]
  - DRUG INEFFECTIVE [None]
